FAERS Safety Report 15219500 (Version 1)
Quarter: 2018Q3

REPORT INFORMATION
  Report Type: Spontaneous
  Country: US (occurrence: US)
  Receive Date: 20180731
  Receipt Date: 20180731
  Transmission Date: 20181010
  Serious: Yes (Hospitalization)
  Sender: FDA-Public Use
  Company Number: US-BEH-2018093227

PATIENT
  Age: 38 Year
  Sex: Male
  Weight: 78.5 kg

DRUGS (34)
  1. CHLORTHALIDONE. [Concomitant]
     Active Substance: CHLORTHALIDONE
  2. TESTOSTERONE CYPIONATE. [Concomitant]
     Active Substance: TESTOSTERONE CYPIONATE
  3. HYDROCODONE BITART. AND HOMATROPINE METHYLBR. [Concomitant]
  4. VALSARTAN. [Concomitant]
     Active Substance: VALSARTAN
  5. EPINEPHRINE. [Concomitant]
     Active Substance: EPINEPHRINE
  6. CITALOPRAM [Concomitant]
     Active Substance: CITALOPRAM HYDROBROMIDE
  7. ZEMAIRA [Suspect]
     Active Substance: .ALPHA.1-PROTEINASE INHIBITOR HUMAN
     Indication: ALPHA-1 ANTI-TRYPSIN DEFICIENCY
     Dosage: UNK
     Route: 042
  8. GABAPENTIN. [Concomitant]
     Active Substance: GABAPENTIN
  9. SODIUM CHLORIDE. [Concomitant]
     Active Substance: SODIUM CHLORIDE
  10. PRAVASTATIN. [Concomitant]
     Active Substance: PRAVASTATIN
  11. BREO ELLIPTA [Concomitant]
     Active Substance: FLUTICASONE FUROATE\VILANTEROL TRIFENATATE
  12. CAMBIA [Concomitant]
     Active Substance: DICLOFENAC POTASSIUM
  13. TOPROL XL [Concomitant]
     Active Substance: METOPROLOL SUCCINATE
  14. SYMBICORT [Concomitant]
     Active Substance: BUDESONIDE\FORMOTEROL FUMARATE DIHYDRATE
  15. ZEMAIRA [Suspect]
     Active Substance: .ALPHA.1-PROTEINASE INHIBITOR HUMAN
     Indication: HEREDITARY ANGIOEDEMA
     Dosage: 60 MG/KG, QW
     Route: 042
     Dates: start: 20140801
  16. XANAX [Concomitant]
     Active Substance: ALPRAZOLAM
  17. METHOCARBAMOL. [Concomitant]
     Active Substance: METHOCARBAMOL
  18. JANUMET [Concomitant]
     Active Substance: METFORMIN HYDROCHLORIDE\SITAGLIPTIN PHOSPHATE
  19. LMX                                /00033401/ [Concomitant]
  20. AMBIEN [Concomitant]
     Active Substance: ZOLPIDEM TARTRATE
  21. DIPHENHYDRAMINE. [Concomitant]
     Active Substance: DIPHENHYDRAMINE
  22. FLUTICASONE. [Concomitant]
     Active Substance: FLUTICASONE
  23. LEVOFLOXACINE                      /01278901/ [Concomitant]
     Active Substance: LEVOFLOXACIN
  24. AMLODIPINE BESYLATE. [Concomitant]
     Active Substance: AMLODIPINE BESYLATE
  25. ALBUTEROL                          /00139501/ [Concomitant]
     Active Substance: ALBUTEROL
  26. NITROGLYCERIN. [Concomitant]
     Active Substance: NITROGLYCERIN
  27. VALACYCLOVIR [Concomitant]
     Active Substance: VALACYCLOVIR HYDROCHLORIDE
  28. HYDROCODONE BITARTRATE AND ACETAMINOPHEN [Concomitant]
     Active Substance: ACETAMINOPHEN\HYDROCODONE BITARTRATE
  29. PREDNISONE. [Concomitant]
     Active Substance: PREDNISONE
  30. REPAGLINIDE. [Concomitant]
     Active Substance: REPAGLINIDE
  31. CYCLOBENZAPRINE. [Concomitant]
     Active Substance: CYCLOBENZAPRINE
  32. OXYGEN. [Concomitant]
     Active Substance: OXYGEN
  33. INVOKANA [Concomitant]
     Active Substance: CANAGLIFLOZIN
  34. MONTELUKAST [Concomitant]
     Active Substance: MONTELUKAST SODIUM

REACTIONS (3)
  - Blood potassium decreased [Unknown]
  - Pneumonia [Unknown]
  - Carbon dioxide increased [Unknown]

NARRATIVE: CASE EVENT DATE: 20180720
